FAERS Safety Report 5869511-6 (Version None)
Quarter: 2008Q3

REPORT INFORMATION
  Report Type: 
  Country: None (occurrence: None)
  Receive Date: 20080902
  Receipt Date: 20080822
  Transmission Date: 20090109
  Serious: Yes (Hospitalization)
  Sender: FDA-Public Use
  Company Number: 20085452

PATIENT
  Sex: Male

DRUGS (1)
  1. LIORESAL [Suspect]
     Indication: MUSCLE SPASTICITY
     Dosage: /MCG, DAILY, INTRATHECAL
     Route: 037

REACTIONS (9)
  - DEVICE MALFUNCTION [None]
  - DRUG INEFFECTIVE [None]
  - FEELING ABNORMAL [None]
  - HYPOTONIA [None]
  - MUSCLE SPASMS [None]
  - OVERDOSE [None]
  - PARAESTHESIA [None]
  - PRURITUS [None]
  - WITHDRAWAL SYNDROME [None]
